FAERS Safety Report 9458239 (Version 3)
Quarter: 2013Q3

REPORT INFORMATION
  Report Type: Spontaneous
  Country: FR (occurrence: None)
  Receive Date: 20130812
  Receipt Date: 20130927
  Transmission Date: 20140515
  Serious: Yes (Hospitalization, Other)
  Sender: FDA-Public Use
  Company Number: 2013FR002232

PATIENT
  Age: 47 Year
  Sex: Male
  Weight: 75 kg

DRUGS (7)
  1. PONATINIB [Suspect]
     Indication: ACUTE LYMPHOCYTIC LEUKAEMIA
     Route: 048
     Dates: start: 20130703, end: 20130730
  2. PONATINIB [Suspect]
     Indication: B PRECURSOR TYPE ACUTE LEUKAEMIA
     Route: 048
     Dates: start: 20130703, end: 20130730
  3. PONATINIB [Suspect]
     Indication: B PRECURSOR TYPE ACUTE LEUKAEMIA
     Route: 048
     Dates: start: 20130703, end: 20130730
  4. ROVALCYTE (VALGANCICLOVIR HYDROCHLORIDE) UNKNOWN [Concomitant]
     Route: 048
     Dates: start: 20130705, end: 20130730
  5. ITRACONAZOLE (ITRACONAZOLE) [Concomitant]
  6. RAMIPRIL (RAMIPRIL) [Concomitant]
  7. BACTRIM [Concomitant]

REACTIONS (1)
  - Agranulocytosis [None]
